FAERS Safety Report 9204265 (Version 2)
Quarter: 2013Q2

REPORT INFORMATION
  Report Type: Report from Study
  Country: US (occurrence: US)
  Receive Date: 20130402
  Receipt Date: 20130514
  Transmission Date: 20140414
  Serious: Yes (Hospitalization, Other)
  Sender: FDA-Public Use
  Company Number: US-PURDUE-USA-2013-0100327

PATIENT
  Age: 41 Year
  Sex: Female

DRUGS (1)
  1. OXYCONTIN (NDA 22-272) [Suspect]
     Indication: PRODUCT USED FOR UNKNOWN INDICATION
     Dosage: 80 MG, Q12H
     Route: 048

REACTIONS (3)
  - Infection [Unknown]
  - Renal failure acute [Recovered/Resolved]
  - Gastritis [Recovered/Resolved]
